FAERS Safety Report 25671032 (Version 1)
Quarter: 2025Q3

REPORT INFORMATION
  Report Type: Spontaneous
  Country: EU (occurrence: EU)
  Receive Date: 20250812
  Receipt Date: 20250812
  Transmission Date: 20251021
  Serious: Yes (Hospitalization)
  Sender: MYLAN
  Company Number: None

PATIENT
  Age: 79 Year
  Sex: Female

DRUGS (36)
  1. CARDURA [Suspect]
     Active Substance: DOXAZOSIN MESYLATE
     Indication: Hypertension
     Dosage: 4 MILLIGRAM, QD (THERAPY ONGOING)
  2. CARDURA [Suspect]
     Active Substance: DOXAZOSIN MESYLATE
     Dosage: 4 MILLIGRAM, QD (THERAPY ONGOING)
     Route: 048
  3. CARDURA [Suspect]
     Active Substance: DOXAZOSIN MESYLATE
     Dosage: 4 MILLIGRAM, QD (THERAPY ONGOING)
     Route: 048
  4. CARDURA [Suspect]
     Active Substance: DOXAZOSIN MESYLATE
     Dosage: 4 MILLIGRAM, QD (THERAPY ONGOING)
  5. VINPOCETINE [Suspect]
     Active Substance: VINPOCETINE
     Indication: Product used for unknown indication
     Dosage: 10 MILLIGRAM, QD (THERAPY ONGOING)
  6. VINPOCETINE [Suspect]
     Active Substance: VINPOCETINE
     Dosage: 10 MILLIGRAM, QD (THERAPY ONGOING)
     Route: 048
  7. VINPOCETINE [Suspect]
     Active Substance: VINPOCETINE
     Dosage: 10 MILLIGRAM, QD (THERAPY ONGOING)
     Route: 048
  8. VINPOCETINE [Suspect]
     Active Substance: VINPOCETINE
     Dosage: 10 MILLIGRAM, QD (THERAPY ONGOING)
  9. SPIRONOLACTONE [Suspect]
     Active Substance: SPIRONOLACTONE
     Indication: Hypertension
     Dosage: 25 MILLIGRAM, QD (THERAPY ONGOING)
  10. SPIRONOLACTONE [Suspect]
     Active Substance: SPIRONOLACTONE
     Dosage: 25 MILLIGRAM, QD (THERAPY ONGOING)
     Route: 065
  11. SPIRONOLACTONE [Suspect]
     Active Substance: SPIRONOLACTONE
     Dosage: 25 MILLIGRAM, QD (THERAPY ONGOING)
     Route: 065
  12. SPIRONOLACTONE [Suspect]
     Active Substance: SPIRONOLACTONE
     Dosage: 25 MILLIGRAM, QD (THERAPY ONGOING)
  13. PRIMACOR [Suspect]
     Active Substance: MILRINONE LACTATE
     Indication: Hypertension
     Dosage: 20 MILLIGRAM, QD (THERAPY ONGOING)
  14. PRIMACOR [Suspect]
     Active Substance: MILRINONE LACTATE
     Dosage: 20 MILLIGRAM, QD (THERAPY ONGOING)
     Route: 048
  15. PRIMACOR [Suspect]
     Active Substance: MILRINONE LACTATE
     Dosage: 20 MILLIGRAM, QD (THERAPY ONGOING)
     Route: 048
  16. PRIMACOR [Suspect]
     Active Substance: MILRINONE LACTATE
     Dosage: 20 MILLIGRAM, QD (THERAPY ONGOING)
  17. BISOPROLOL [Suspect]
     Active Substance: BISOPROLOL
     Indication: Left ventricular failure
     Dosage: 5 MILLIGRAM, QD (THERAPY ONGOING)
  18. BISOPROLOL [Suspect]
     Active Substance: BISOPROLOL
     Dosage: 5 MILLIGRAM, QD (THERAPY ONGOING)
     Route: 048
  19. BISOPROLOL [Suspect]
     Active Substance: BISOPROLOL
     Dosage: 5 MILLIGRAM, QD (THERAPY ONGOING)
     Route: 048
  20. BISOPROLOL [Suspect]
     Active Substance: BISOPROLOL
     Dosage: 5 MILLIGRAM, QD (THERAPY ONGOING)
  21. BETAHISTINE [Concomitant]
     Active Substance: BETAHISTINE
     Indication: Tinnitus
     Dosage: 24 MILLIGRAM, QD (THERAPY ONGOING)
  22. BETAHISTINE [Concomitant]
     Active Substance: BETAHISTINE
     Dosage: 24 MILLIGRAM, QD (THERAPY ONGOING)
     Route: 048
  23. BETAHISTINE [Concomitant]
     Active Substance: BETAHISTINE
     Dosage: 24 MILLIGRAM, QD (THERAPY ONGOING)
     Route: 048
  24. BETAHISTINE [Concomitant]
     Active Substance: BETAHISTINE
     Dosage: 24 MILLIGRAM, QD (THERAPY ONGOING)
  25. LEVOTHYROXINE SODIUM [Concomitant]
     Active Substance: LEVOTHYROXINE SODIUM
     Indication: Hypothyroidism
     Dosage: 150 MICROGRAM, QD (THERAPY ONGOING)
  26. LEVOTHYROXINE SODIUM [Concomitant]
     Active Substance: LEVOTHYROXINE SODIUM
     Dosage: 150 MICROGRAM, QD (THERAPY ONGOING)
     Route: 048
  27. LEVOTHYROXINE SODIUM [Concomitant]
     Active Substance: LEVOTHYROXINE SODIUM
     Dosage: 150 MICROGRAM, QD (THERAPY ONGOING)
     Route: 048
  28. LEVOTHYROXINE SODIUM [Concomitant]
     Active Substance: LEVOTHYROXINE SODIUM
     Dosage: 150 MICROGRAM, QD (THERAPY ONGOING)
  29. Acenocumarol wzf [Concomitant]
     Indication: Atrial fibrillation
  30. Acenocumarol wzf [Concomitant]
     Route: 048
  31. Acenocumarol wzf [Concomitant]
     Route: 048
  32. Acenocumarol wzf [Concomitant]
  33. Diosminex [Concomitant]
     Indication: Peripheral venous disease
     Dosage: 500 MILLIGRAM, QD (THERAPY ONGOING)
  34. Diosminex [Concomitant]
     Dosage: 500 MILLIGRAM, QD (THERAPY ONGOING)
     Route: 048
  35. Diosminex [Concomitant]
     Dosage: 500 MILLIGRAM, QD (THERAPY ONGOING)
     Route: 048
  36. Diosminex [Concomitant]
     Dosage: 500 MILLIGRAM, QD (THERAPY ONGOING)

REACTIONS (2)
  - Periprosthetic fracture [Unknown]
  - Fall [Unknown]

NARRATIVE: CASE EVENT DATE: 20210607
